FAERS Safety Report 8345284-2 (Version None)
Quarter: 2012Q2

REPORT INFORMATION
  Report Type: 
  Country: None (occurrence: None)
  Receive Date: 20120504
  Receipt Date: 20120423
  Transmission Date: 20120825
  Serious: Yes (Life-Threatening, Hospitalization)
  Sender: FDA-Public Use
  Company Number: 1268631

PATIENT
  Age: 78 Year
  Sex: Male
  Weight: 35.3806 kg

DRUGS (7)
  1. CEFUROXIME SODIUM [Suspect]
     Indication: ANTIBIOTIC PROPHYLAXIS
     Dosage: 1.5 G GRAM(S), INTRAVENOUS (NOT OTHERWISE SPECIFIED)
     Route: 042
     Dates: start: 20120413, end: 20120413
  2. ROCURONIUM BROMIDE [Suspect]
     Indication: GENERAL ANAESTHESIA
     Dosage: 40 MG MILLIGRAM(S), INTRAVENOUS
     Route: 042
     Dates: start: 20120413, end: 20120413
  3. METRONIDAZOLE [Concomitant]
  4. REMIFENTANIL [Concomitant]
  5. CHLORHEXIDINE GLUCONATE [Suspect]
     Indication: INFECTION PROPHYLAXIS
     Dosage: TOPICAL
     Dates: start: 20120413, end: 20120413
  6. PROPOFOL [Concomitant]
  7. (BETADINE /00080001/) [Concomitant]

REACTIONS (5)
  - HYPOTENSION [None]
  - BLOOD PRESSURE SYSTOLIC DECREASED [None]
  - FLUSHING [None]
  - OXYGEN SATURATION DECREASED [None]
  - HYPERSENSITIVITY [None]
